FAERS Safety Report 7485001-1 (Version None)
Quarter: 2011Q2

REPORT INFORMATION
  Report Type: 
  Country: None (occurrence: None)
  Receive Date: 20110517
  Receipt Date: 20101009
  Transmission Date: 20111010
  Serious: No
  Sender: FDA-Public Use
  Company Number: US-BAYER-201022670BCC

PATIENT
  Age: 59 Year
  Sex: Female
  Weight: 79.545 kg

DRUGS (2)
  1. ALEVE [Suspect]
     Dosage: 440 MG, ONCE
     Route: 048
     Dates: start: 20101008
  2. BENICAR [Concomitant]

REACTIONS (2)
  - PAIN [None]
  - SOMNOLENCE [None]
